FAERS Safety Report 13556925 (Version 1)
Quarter: 2017Q2

REPORT INFORMATION
  Report Type: Spontaneous
  Country: EE (occurrence: EE)
  Receive Date: 20170518
  Receipt Date: 20170518
  Transmission Date: 20170830
  Serious: Yes (Other)
  Sender: FDA-Public Use
  Company Number: EE-APOTEX-2017AP012189

PATIENT

DRUGS (1)
  1. IMATINIB APOTEX 400 MG ?UKESE POL?EERIKATTEGA TABLETED 400MG [Suspect]
     Active Substance: IMATINIB
     Indication: CHRONIC MYELOID LEUKAEMIA
     Route: 065

REACTIONS (3)
  - Malignant neoplasm progression [Unknown]
  - Blast crisis in myelogenous leukaemia [Unknown]
  - Drug ineffective [Unknown]
